FAERS Safety Report 21233966 (Version 1)
Quarter: 2022Q3

REPORT INFORMATION
  Report Type: Spontaneous
  Country: PL (occurrence: PL)
  Receive Date: 20220819
  Receipt Date: 20220819
  Transmission Date: 20221026
  Serious: Yes (Other)
  Sender: FDA-Public Use
  Company Number: PL-TEVA-2022-PL-2064920

PATIENT
  Age: 57 Year
  Sex: Female

DRUGS (1)
  1. AZITHROMYCIN [Suspect]
     Active Substance: AZITHROMYCIN
     Indication: Product used for unknown indication
     Dosage: 500 MILLIGRAM DAILY; 500 MILLIGRAM
     Route: 065
     Dates: start: 20220804

REACTIONS (6)
  - Hypoacusis [Unknown]
  - Deafness unilateral [Unknown]
  - Flatulence [Unknown]
  - Diarrhoea [Unknown]
  - Asthenia [Unknown]
  - Balance disorder [Unknown]

NARRATIVE: CASE EVENT DATE: 20220810
